FAERS Safety Report 16774964 (Version 1)
Quarter: 2019Q3

REPORT INFORMATION
  Report Type: Spontaneous
  Country: GB (occurrence: GB)
  Receive Date: 20190905
  Receipt Date: 20190905
  Transmission Date: 20191005
  Serious: Yes (Other)
  Sender: FDA-Public Use
  Company Number: GB-TEVA-2019-GB-1101249

PATIENT
  Age: 38 Year
  Sex: Female
  Weight: 66.67 kg

DRUGS (2)
  1. METOCLOPRAMIDE. [Suspect]
     Active Substance: METOCLOPRAMIDE
     Indication: GASTROOESOPHAGEAL REFLUX DISEASE
     Route: 048
     Dates: start: 20080101, end: 20080701
  2. DESOGESTREL [Concomitant]
     Active Substance: DESOGESTREL

REACTIONS (4)
  - Insomnia [Recovered/Resolved with Sequelae]
  - Generalised anxiety disorder [Not Recovered/Not Resolved]
  - Incorrect product administration duration [Unknown]
  - Blood prolactin increased [Recovered/Resolved]

NARRATIVE: CASE EVENT DATE: 20080401
